FAERS Safety Report 24382680 (Version 2)
Quarter: 2025Q3

REPORT INFORMATION
  Report Type: Spontaneous
  Country: CA (occurrence: CA)
  Receive Date: 20241001
  Receipt Date: 20250803
  Transmission Date: 20251021
  Serious: Yes (Other)
  Sender: ALEXION PHARMACEUTICALS
  Company Number: CA-AstraZeneca-CH-00712008A

PATIENT
  Age: 15 Year
  Sex: Male
  Weight: 127 kg

DRUGS (5)
  1. QUETIAPINE FUMARATE [Suspect]
     Active Substance: QUETIAPINE FUMARATE
  2. CLONIDINE HYDROCHLORIDE [Suspect]
     Active Substance: CLONIDINE HYDROCHLORIDE
     Route: 065
  3. LAMOTRIGINE [Suspect]
     Active Substance: LAMOTRIGINE
     Route: 065
  4. SERTRALINE HYDROCHLORIDE [Suspect]
     Active Substance: SERTRALINE HYDROCHLORIDE
     Route: 065
  5. ZIPRASIDONE [Suspect]
     Active Substance: ZIPRASIDONE
     Route: 065

REACTIONS (6)
  - Aggression [Recovered/Resolved]
  - Blood prolactin increased [Recovered/Resolved]
  - Obesity [Recovered/Resolved]
  - Off label use [Recovered/Resolved]
  - Product prescribing issue [Recovered/Resolved]
  - Product use issue [Recovered/Resolved]
